FAERS Safety Report 6895404-1 (Version None)
Quarter: 2010Q3

REPORT INFORMATION
  Report Type: 
  Country: None (occurrence: None)
  Receive Date: 20100802
  Receipt Date: 20100722
  Transmission Date: 20110219
  Serious: Yes (Hospitalization, Congenital Anomaly, Other)
  Sender: FDA-Public Use
  Company Number: US-PFIZER INC-2006077550

PATIENT
  Sex: Female
  Weight: 68.04 kg

DRUGS (12)
  1. XALATAN [Suspect]
     Indication: GLAUCOMA
     Dosage: 2 GTT, 1X/DAY
     Route: 065
     Dates: start: 19980101
  2. LASIX [Suspect]
     Indication: JOINT SWELLING
     Dosage: UNK
     Route: 065
  3. ESTRADIOL [Concomitant]
     Dosage: UNK
     Route: 065
     Dates: start: 19590101
  4. INDERAL [Concomitant]
     Dosage: UNK
     Route: 065
     Dates: start: 19840101
  5. TIMOPTIC [Concomitant]
     Dosage: UNK
     Route: 065
     Dates: start: 19960101, end: 19980101
  6. ZANTAC [Concomitant]
     Dosage: UNK
     Route: 065
     Dates: start: 19980101
  7. RIBELFAN [Concomitant]
     Indication: MUSCLE SPASMS
     Dosage: UNK
     Route: 065
  8. VALIUM [Concomitant]
     Indication: MUSCLE SPASMS
     Dosage: UNK
     Route: 065
     Dates: start: 20030101
  9. VALSARTAN [Concomitant]
     Indication: BLOOD PRESSURE INCREASED
     Dosage: UNK
     Route: 065
  10. DARVOCET [Concomitant]
     Indication: ARTHRALGIA
     Dosage: UNK
     Route: 065
  11. CORTISONE [Concomitant]
     Indication: ARTHRALGIA
     Dosage: UNK
     Route: 065
     Dates: start: 20060619
  12. KLOR-CON [Concomitant]
     Indication: FLUID RETENTION
     Dosage: UNK
     Route: 065

REACTIONS (8)
  - ARTHRALGIA [None]
  - CARPAL TUNNEL SYNDROME [None]
  - FLUID RETENTION [None]
  - GASTROOESOPHAGEAL REFLUX DISEASE [None]
  - HYPERTENSION [None]
  - INTRAOCULAR PRESSURE INCREASED [None]
  - JOINT INJURY [None]
  - MUSCLE SPASMS [None]
